FAERS Safety Report 6682518-4 (Version None)
Quarter: 2010Q2

REPORT INFORMATION
  Report Type: 
  Country: None (occurrence: None)
  Receive Date: 20100414
  Receipt Date: 20100414
  Transmission Date: 20101027
  Serious: Yes (Life-Threatening)
  Sender: FDA-Public Use
  Company Number: None

PATIENT
  Age: 34 Year
  Sex: Female
  Weight: 72.9 kg

DRUGS (1)
  1. VANLAFAXINE [Suspect]
     Indication: DEPRESSION
     Dosage: 75 MG AM PO
     Route: 048
     Dates: start: 20100104, end: 20100210

REACTIONS (3)
  - SUICIDAL IDEATION [None]
  - SUSPICIOUSNESS [None]
  - TACHYPHRENIA [None]
